FAERS Safety Report 15904783 (Version 3)
Quarter: 2019Q1

REPORT INFORMATION
  Report Type: Report from Study
  Country: US (occurrence: US)
  Receive Date: 20190204
  Receipt Date: 20190320
  Transmission Date: 20190417
  Serious: No
  Sender: FDA-Public Use
  Company Number: PHEH2019US004551

PATIENT
  Age: 16 Year
  Sex: Male
  Weight: 85.45 kg

DRUGS (3)
  1. ILARIS [Suspect]
     Active Substance: CANAKINUMAB
     Indication: STILL^S DISEASE
     Dosage: 300 MG, Q4W
     Route: 058
  2. ILARIS [Suspect]
     Active Substance: CANAKINUMAB
     Dosage: 300 MG, Q4W
     Route: 058
  3. ILARIS [Suspect]
     Active Substance: CANAKINUMAB
     Dosage: 300 MG, Q4W
     Route: 058

REACTIONS (8)
  - Pain [Recovering/Resolving]
  - Pruritus [Recovering/Resolving]
  - Stress [Unknown]
  - Insomnia [Unknown]
  - Arthropod bite [Unknown]
  - Muscle fatigue [Recovering/Resolving]
  - Lymphadenopathy [Unknown]
  - Asthenia [Recovering/Resolving]

NARRATIVE: CASE EVENT DATE: 20181012
